FAERS Safety Report 5247337-4 (Version None)
Quarter: 2007Q1

REPORT INFORMATION
  Report Type: 
  Country: None (occurrence: None)
  Receive Date: 20070223
  Receipt Date: 20070223
  Transmission Date: 20070707
  Serious: Yes (Disabling)
  Sender: FDA-Public Use
  Company Number: None

PATIENT
  Age: 71 Year
  Sex: Male
  Weight: 73.4827 kg

DRUGS (2)
  1. AVELOX [Suspect]
     Indication: CHRONIC OBSTRUCTIVE PULMONARY DISEASE
     Dosage: 400MG  Q24H IV
     Route: 042
     Dates: start: 20070125, end: 20070125
  2. AVELOX [Suspect]
     Indication: PNEUMONIA
     Dosage: 400MG  Q24H IV
     Route: 042
     Dates: start: 20070125, end: 20070125

REACTIONS (1)
  - RESPIRATORY ARREST [None]
